FAERS Safety Report 15476010 (Version 1)
Quarter: 2018Q4

REPORT INFORMATION
  Report Type: Spontaneous
  Country: US (occurrence: US)
  Receive Date: 20181009
  Receipt Date: 20181009
  Transmission Date: 20190205
  Serious: No
  Sender: FDA-Public Use
  Company Number: US-SHIRE-US201838485

PATIENT
  Sex: Female

DRUGS (1)
  1. NATPARA (PARATHYROID HORMONE) [Suspect]
     Active Substance: PARATHYROID HORMONE
     Indication: HYPOPARATHYROIDISM
     Dosage: 75 ?G, UNK
     Route: 065
     Dates: start: 201808

REACTIONS (6)
  - Blood calcium decreased [Unknown]
  - Asthenia [Recovering/Resolving]
  - Drug ineffective [Unknown]
  - Product quality issue [Unknown]
  - Feeling abnormal [Recovering/Resolving]
  - Malaise [Recovering/Resolving]

NARRATIVE: CASE EVENT DATE: 2018
